FAERS Safety Report 13613207 (Version 1)
Quarter: 2017Q2

REPORT INFORMATION
  Report Type: Spontaneous
  Country: US (occurrence: US)
  Receive Date: 20170605
  Receipt Date: 20170605
  Transmission Date: 20170830
  Serious: No
  Sender: FDA-Public Use
  Company Number: US-BAYER-2017-098985

PATIENT
  Age: 77 Year
  Sex: Male
  Weight: 67 kg

DRUGS (3)
  1. BAYER LOW DOSE [Concomitant]
     Active Substance: ASPIRIN
     Dosage: UNK
  2. ALEVE [Suspect]
     Active Substance: NAPROXEN SODIUM
     Indication: PAIN
     Dosage: 1 DF, UNK
     Route: 048
     Dates: start: 2016
  3. MIDODRINE [Concomitant]
     Active Substance: MIDODRINE
     Dosage: UNK

REACTIONS (2)
  - Dyspepsia [Recovered/Resolved with Sequelae]
  - Wrong technique in product usage process [Recovered/Resolved with Sequelae]
